FAERS Safety Report 4983660-6 (Version None)
Quarter: 2006Q2

REPORT INFORMATION
  Report Type: 
  Country: None (occurrence: None)
  Receive Date: 20060425
  Receipt Date: 20060425
  Transmission Date: 20061013
  Serious: Yes (Other)
  Sender: FDA-Public Use
  Company Number: None

PATIENT
  Sex: Female
  Weight: 128.368 kg

DRUGS (1)
  1. CEFAZOLIN [Suspect]
     Indication: WOUND INFECTION
     Dosage: 1 GRAM Q8H IV
     Route: 042
     Dates: start: 20060405, end: 20060405

REACTIONS (2)
  - CHILLS [None]
  - DYSPNOEA [None]
